FAERS Safety Report 9992622 (Version 2)
Quarter: 2014Q1

REPORT INFORMATION
  Report Type: Spontaneous
  Country: US (occurrence: US)
  Receive Date: 20140310
  Receipt Date: 20140327
  Transmission Date: 20141002
  Serious: Yes (Hospitalization)
  Sender: FDA-Public Use
  Company Number: US-B.I. PHARMACEUTICALS,INC./RIDGEFIELD-2014-BI-09507BP

PATIENT
  Age: 61 Year
  Sex: Female
  Weight: 63 kg

DRUGS (2)
  1. SPIRIVA [Suspect]
     Indication: CHRONIC OBSTRUCTIVE PULMONARY DISEASE
     Dosage: 18 MCG
     Route: 055
     Dates: start: 201210
  2. CEFDINIR [Concomitant]
     Indication: URINARY TRACT INFECTION
     Dosage: 600 MG
     Route: 048

REACTIONS (4)
  - Diverticulitis [Recovered/Resolved]
  - Pancreatic cyst [Not Recovered/Not Resolved]
  - Abdominal pain [Recovered/Resolved]
  - Urinary tract infection [Not Recovered/Not Resolved]
